FAERS Safety Report 25328363 (Version 3)
Quarter: 2025Q2

REPORT INFORMATION
  Report Type: Report from Study
  Country: BR (occurrence: BR)
  Receive Date: 20250518
  Receipt Date: 20250529
  Transmission Date: 20250717
  Serious: Yes (Hospitalization, Other)
  Sender: BIOGEN
  Company Number: BR-BIOGEN-2024BI01269702

PATIENT
  Sex: Female
  Weight: 69 kg

DRUGS (5)
  1. TYSABRI [Suspect]
     Active Substance: NATALIZUMAB
     Indication: Multiple sclerosis
     Route: 050
     Dates: start: 2021
  2. TYSABRI [Suspect]
     Active Substance: NATALIZUMAB
     Route: 050
  3. VITAMIN D [Concomitant]
     Active Substance: VITAMIN D NOS
     Indication: Product used for unknown indication
     Route: 050
  4. CLONAZEPAM [Concomitant]
     Active Substance: CLONAZEPAM
     Indication: Insomnia
     Route: 050
  5. Versa (enoxaparin sodium) [Concomitant]
     Indication: Thrombosis prophylaxis
     Route: 050

REACTIONS (12)
  - Osteonecrosis [Unknown]
  - Fibromyalgia [Not Recovered/Not Resolved]
  - Osteoarthritis [Unknown]
  - Respiratory arrest [Unknown]
  - Osteoarthritis [Unknown]
  - Limb discomfort [Unknown]
  - Multiple sclerosis [Not Recovered/Not Resolved]
  - Muscle spasms [Not Recovered/Not Resolved]
  - Pain [Not Recovered/Not Resolved]
  - Fall [Recovered/Resolved]
  - Lower limb fracture [Unknown]
  - Fatigue [Unknown]

NARRATIVE: CASE EVENT DATE: 20220101
